FAERS Safety Report 12174190 (Version 2)
Quarter: 2016Q1

REPORT INFORMATION
  Report Type: Spontaneous
  Country: DE (occurrence: DE)
  Receive Date: 20160314
  Receipt Date: 20160323
  Transmission Date: 20160526
  Serious: Yes (Other)
  Sender: FDA-Public Use
  Company Number: DE-AMGEN-DEUSP2016019888

PATIENT
  Age: 66 Year
  Sex: Male
  Weight: 76 kg

DRUGS (3)
  1. CALCIUM SANDOZ + D [Concomitant]
  2. XTANDI [Concomitant]
     Active Substance: ENZALUTAMIDE
     Dosage: 4 DF, QD
     Route: 048
  3. XGEVA [Suspect]
     Active Substance: DENOSUMAB
     Indication: METASTASES TO BONE
     Dosage: UNK UNK, QMO
     Route: 065
     Dates: start: 201501, end: 201601

REACTIONS (7)
  - Metastases to bone [Unknown]
  - Osteoarthritis [Unknown]
  - Pain in jaw [Unknown]
  - Arthralgia [Unknown]
  - Osteitis [Unknown]
  - Arthropathy [Unknown]
  - Tooth disorder [Unknown]
